FAERS Safety Report 19283896 (Version 2)
Quarter: 2021Q2

REPORT INFORMATION
  Report Type: Spontaneous
  Country: US (occurrence: US)
  Receive Date: 20210520
  Receipt Date: 20210531
  Transmission Date: 20210717
  Serious: Yes (Other)
  Sender: FDA-Public Use
  Company Number: US-DRREDDYS-USA/USA/21/0135741

PATIENT
  Age: 19 Year
  Sex: Female

DRUGS (5)
  1. CISPLATIN. [Suspect]
     Active Substance: CISPLATIN
     Indication: ADRENOCORTICAL CARCINOMA
  2. ETOPOSIDE. [Suspect]
     Active Substance: ETOPOSIDE
     Indication: ADRENOCORTICAL CARCINOMA
  3. DEXRAZOXANE. [Concomitant]
     Active Substance: DEXRAZOXANE
     Indication: ADRENOCORTICAL CARCINOMA
  4. DOXORUBICIN HYDROCHLORIDE LIPOSOME INJECTION 20 MG/10 ML (2 MG/ML) AND [Suspect]
     Active Substance: DOXORUBICIN HYDROCHLORIDE
     Indication: ADRENOCORTICAL CARCINOMA
  5. MITOTANE [Concomitant]
     Active Substance: MITOTANE
     Indication: ADRENOCORTICAL CARCINOMA

REACTIONS (2)
  - Ejection fraction decreased [Recovering/Resolving]
  - Cardiomyopathy [Recovering/Resolving]
